FAERS Safety Report 9095187 (Version 1)
Quarter: 2013Q1

REPORT INFORMATION
  Report Type: Spontaneous
  Country: CZ (occurrence: CZ)
  Receive Date: 20130219
  Receipt Date: 20130219
  Transmission Date: 20140127
  Serious: Yes (Hospitalization)
  Sender: FDA-Public Use
  Company Number: CZ-009507513-1302CZE007751

PATIENT
  Age: 79 Year
  Sex: Female

DRUGS (4)
  1. ALENDRONATE SODIUM [Suspect]
     Indication: OSTEOPOROSIS
     Dosage: 70 MG, QW
     Route: 048
  2. CALCIUM CARBONATE [Concomitant]
  3. HEPARIN LOW MOLECULAR WEIGHT [Concomitant]
  4. ACETAMINOPHEN [Concomitant]

REACTIONS (1)
  - Osteonecrosis [Recovering/Resolving]
